FAERS Safety Report 15392389 (Version 1)
Quarter: 2018Q3

REPORT INFORMATION
  Report Type: Spontaneous
  Country: US (occurrence: US)
  Receive Date: 20180911
  Receipt Date: 20180911
  Transmission Date: 20181010
  Serious: Yes (Disabling, Other)
  Sender: FDA-Public Use
  Company Number: None

PATIENT
  Age: 36 Year
  Sex: Male
  Weight: 117.9 kg

DRUGS (9)
  1. CYMBALTA [Concomitant]
     Active Substance: DULOXETINE HYDROCHLORIDE
  2. VITAMIN D [Concomitant]
     Active Substance: CHOLECALCIFEROL
  3. DAILY MULTIVITAMIN [Concomitant]
     Active Substance: VITAMINS
  4. LEXAPRO [Concomitant]
     Active Substance: ESCITALOPRAM OXALATE
  5. PLAQUENIL (HYDROXYCHLOROQUINE) [Concomitant]
  6. TYLENOL [Concomitant]
     Active Substance: ACETAMINOPHEN
  7. H.P. ACTHAR [Suspect]
     Active Substance: CORTICOTROPIN
     Indication: SYSTEMIC LUPUS ERYTHEMATOSUS
     Dosage: ?          QUANTITY:1 INJECTION(S);OTHER FREQUENCY:TWICE A WEEK;?
     Route: 058
     Dates: start: 20180514, end: 20180904
  8. PREDNISONE. [Concomitant]
     Active Substance: PREDNISONE
  9. VITAMIN B COMPLEX [Concomitant]
     Active Substance: CYANOCOBALAMIN\DEXPANTHENOL\NIACINAMIDE\PYRIDOXINE HYDROCHLORIDE\RIBOFLAVIN 5^-PHOSPHATE SODIUM\THIAMINE HYDROCHLORIDE\VITAMIN B COMPLEX

REACTIONS (13)
  - Hyperhidrosis [None]
  - Depression [None]
  - Psychotic disorder [None]
  - Panic attack [None]
  - Cognitive disorder [None]
  - Feeling abnormal [None]
  - Mood swings [None]
  - Amnesia [None]
  - Diarrhoea [None]
  - Post-traumatic stress disorder [None]
  - Anger [None]
  - Blood uric acid increased [None]
  - Pain [None]

NARRATIVE: CASE EVENT DATE: 20180707
